FAERS Safety Report 8775952 (Version 1)
Quarter: 2012Q4

REPORT INFORMATION
  Report Type: Report from Study
  Country: US (occurrence: US)
  Receive Date: 20120910
  Receipt Date: 20120910
  Transmission Date: 20130627
  Serious: Yes (Disabling)
  Sender: FDA-Public Use
  Company Number: US-ROCHE-1111641

PATIENT
  Age: 59 Year
  Sex: Female
  Weight: 70.37 kg

DRUGS (1)
  1. RANIBIZUMAB [Suspect]
     Indication: ULCERATIVE KERATITIS
     Route: 065
     Dates: start: 20100924

REACTIONS (1)
  - Eye excision [Unknown]
